FAERS Safety Report 6754071-8 (Version None)
Quarter: 2010Q2

REPORT INFORMATION
  Report Type: 
  Country: None (occurrence: None)
  Receive Date: 20100601
  Receipt Date: 20100517
  Transmission Date: 20101027
  Serious: Yes (Other)
  Sender: FDA-Public Use
  Company Number: 2010001889

PATIENT
  Weight: 48.9885 kg

DRUGS (2)
  1. TARCEVA [Suspect]
     Indication: NON-SMALL CELL LUNG CANCER
     Dosage: (150 MG,QD),ORAL
     Route: 048
     Dates: start: 20100405
  2. OXYCONTIN [Concomitant]

REACTIONS (2)
  - HAEMOPTYSIS [None]
  - VOCAL CORD PARALYSIS [None]
